FAERS Safety Report 8529803-9 (Version None)
Quarter: 2012Q3

REPORT INFORMATION
  Report Type: 
  Country: None (occurrence: None)
  Receive Date: 20120723
  Receipt Date: 20120711
  Transmission Date: 20120928
  Serious: Yes (Disabling)
  Sender: FDA-Public Use
  Company Number: US-JNJFOC-20120402368

PATIENT
  Sex: Male
  Weight: 133.81 kg

DRUGS (6)
  1. ALBUTEROL [Suspect]
     Indication: ASTHMA
     Route: 055
     Dates: start: 20120220, end: 20120310
  2. ADVAIR DISKUS 100/50 [Suspect]
     Indication: ASTHMA
     Route: 055
     Dates: start: 20120220, end: 20120310
  3. LEVAQUIN [Suspect]
     Indication: MALAISE
     Route: 048
     Dates: start: 20120303, end: 20120310
  4. STELARA [Suspect]
     Indication: HIDRADENITIS
     Route: 058
     Dates: start: 20120323
  5. STELARA [Suspect]
     Route: 058
     Dates: start: 20120423
  6. PREDNISONE [Suspect]
     Indication: MALAISE
     Route: 048
     Dates: start: 20120301, end: 20120310

REACTIONS (4)
  - OFF LABEL USE [None]
  - TRANSIENT GLOBAL AMNESIA [None]
  - TRANSIENT ISCHAEMIC ATTACK [None]
  - VISION BLURRED [None]
